FAERS Safety Report 9441397 (Version 1)
Quarter: 2013Q3

REPORT INFORMATION
  Report Type: Spontaneous
  Country: US (occurrence: US)
  Receive Date: 20130805
  Receipt Date: 20130805
  Transmission Date: 20140515
  Serious: Yes (Other)
  Sender: FDA-Public Use
  Company Number: US-TEVA-423110USA

PATIENT
  Sex: Female

DRUGS (1)
  1. MONTELUKAST [Suspect]

REACTIONS (3)
  - Atrial fibrillation [Unknown]
  - Psychomotor hyperactivity [Unknown]
  - Medical device complication [Unknown]
